FAERS Safety Report 20336191 (Version 1)
Quarter: 2022Q1

REPORT INFORMATION
  Report Type: Spontaneous
  Country: US (occurrence: US)
  Receive Date: 20220114
  Receipt Date: 20220114
  Transmission Date: 20220423
  Serious: No
  Sender: FDA-Public Use
  Company Number: US-PFIZER INC-202200051069

PATIENT
  Age: 53 Year
  Sex: Female
  Weight: 102.97 kg

DRUGS (4)
  1. FENTANYL CITRATE [Suspect]
     Active Substance: FENTANYL CITRATE
     Indication: Pain
     Dosage: UNK
     Route: 042
  2. ADVIL DUAL ACTION WITH ACETAMINOPHEN [Suspect]
     Active Substance: ACETAMINOPHEN\IBUPROFEN
  3. ACETAMINOPHEN [Suspect]
     Active Substance: ACETAMINOPHEN
     Dosage: 250 MG (TWO PILLS, TWO TO THREE TIMES/DAY
  4. TORADOL [Suspect]
     Active Substance: KETOROLAC TROMETHAMINE

REACTIONS (1)
  - Drug ineffective [Unknown]
